FAERS Safety Report 9442795 (Version 1)
Quarter: 2013Q3

REPORT INFORMATION
  Report Type: Spontaneous
  Country: US (occurrence: US)
  Receive Date: 20130806
  Receipt Date: 20130806
  Transmission Date: 20140515
  Serious: No
  Sender: FDA-Public Use
  Company Number: US-ABBOTT-13P-163-1080251-00

PATIENT
  Age: 48 Year
  Sex: Male
  Weight: 102.15 kg

DRUGS (6)
  1. DEPAKOTE ER [Suspect]
     Indication: CONVULSION
     Dosage: AT NIGHT
     Dates: start: 201210
  2. DEPAKOTE ER [Suspect]
     Indication: HEADACHE
  3. PROZAC [Concomitant]
     Indication: DEPRESSION
  4. PROTONIX [Concomitant]
     Indication: GASTROOESOPHAGEAL REFLUX DISEASE
  5. ADVIL [Concomitant]
     Indication: PRODUCT USED FOR UNKNOWN INDICATION
  6. LIFEPACK NANO VITAMIN PACK [Concomitant]
     Indication: VITAMIN SUPPLEMENTATION

REACTIONS (1)
  - Blood alcohol increased [Recovered/Resolved]
